FAERS Safety Report 8778975 (Version 2)
Quarter: 2012Q4

REPORT INFORMATION
  Report Type: 
  Country: US (occurrence: US)
  Receive Date: 20120912
  Receipt Date: 20121008
  Transmission Date: 20130627
  Serious: Yes (Other)
  Sender: FDA-Public Use
  Company Number: US-TEVA-358144USA

PATIENT
  Age: 49 Year
  Sex: Female

DRUGS (13)
  1. PROAIR HFA [Suspect]
     Indication: ASTHMA
     Dosage: 1080 Microgram Daily;
  2. PROAIR HFA [Suspect]
     Indication: CHRONIC OBSTRUCTIVE PULMONARY DISEASE
  3. ALBUTEROL NEBULIZER [Concomitant]
     Indication: ASTHMA
     Dosage: 2.5 mg/3ml
  4. ALBUTEROL NEBULIZER [Concomitant]
     Indication: CHRONIC OBSTRUCTIVE PULMONARY DISEASE
  5. QVAR [Concomitant]
     Indication: ASTHMA
  6. QVAR [Concomitant]
     Indication: CHRONIC OBSTRUCTIVE PULMONARY DISEASE
  7. ADVAIR [Concomitant]
     Indication: ASTHMA
  8. ADVAIR [Concomitant]
     Indication: CHRONIC OBSTRUCTIVE PULMONARY DISEASE
  9. TRAZODONE [Concomitant]
     Dosage: at bedtime
  10. LORAZEPAM [Concomitant]
     Dosage: 1 Milligram Daily;
  11. CHANTIX [Concomitant]
     Dosage: 1-2 daily
  12. LITHIUM CARBONATE [Concomitant]
     Dosage: 900 Milligram Daily;
  13. FOLIC ACID [Concomitant]
     Dosage: 1 Milligram Daily;

REACTIONS (4)
  - Pneumonia [Recovered/Resolved]
  - Chronic obstructive pulmonary disease [Unknown]
  - Dyspnoea [Recovering/Resolving]
  - Incorrect dose administered [Not Recovered/Not Resolved]
